FAERS Safety Report 19178923 (Version 1)
Quarter: 2021Q2

REPORT INFORMATION
  Report Type: Spontaneous
  Country: US (occurrence: US)
  Receive Date: 20210423
  Receipt Date: 20210423
  Transmission Date: 20210717
  Serious: No
  Sender: FDA-Public Use
  Company Number: None

PATIENT
  Sex: Male

DRUGS (2)
  1. INLYTA [Suspect]
     Active Substance: AXITINIB
     Indication: BONE NEOPLASM
     Route: 048
     Dates: start: 20201210
  2. INLYTA [Suspect]
     Active Substance: AXITINIB
     Indication: RENAL NEOPLASM
     Route: 048
     Dates: start: 20201210

REACTIONS (3)
  - Oropharyngeal pain [None]
  - Diarrhoea [None]
  - Hepatic enzyme increased [None]
